FAERS Safety Report 19646489 (Version 1)
Quarter: 2021Q3

REPORT INFORMATION
  Report Type: Spontaneous
  Country: US (occurrence: US)
  Receive Date: 20210802
  Receipt Date: 20210802
  Transmission Date: 20211014
  Serious: No
  Sender: FDA-Public Use
  Company Number: None

PATIENT
  Age: 58 Year
  Sex: Male

DRUGS (3)
  1. TOCILIZUMAB (TOCILIZUMAB 20MG/ML INJ, SOLN , 20ML) [Suspect]
     Active Substance: TOCILIZUMAB
  2. ROSUVASTATIN (ROSUVASTATIN CA 20MG TAB) [Suspect]
     Active Substance: ROSUVASTATIN
     Route: 048
     Dates: start: 20210718, end: 20210724
  3. TOCILIZUMAB (TOCILIZUMAB 20MG/ML INJ, SOLN , 20ML) [Suspect]
     Active Substance: TOCILIZUMAB
     Route: 042
     Dates: start: 20210721, end: 20210721

REACTIONS (3)
  - Hepatic enzyme increased [None]
  - Alanine aminotransferase increased [None]
  - Aspartate aminotransferase increased [None]

NARRATIVE: CASE EVENT DATE: 20210725
